FAERS Safety Report 15412401 (Version 7)
Quarter: 2019Q1

REPORT INFORMATION
  Report Type: Report from Study
  Country: CN (occurrence: CN)
  Receive Date: 20180921
  Receipt Date: 20190321
  Transmission Date: 20190417
  Serious: Yes (Hospitalization)
  Sender: FDA-Public Use
  Company Number: CN-ROCHE-2184196

PATIENT
  Age: 44 Year
  Sex: Female
  Weight: 64 kg

DRUGS (88)
  1. SPIRONOLACTONE. [Concomitant]
     Active Substance: SPIRONOLACTONE
     Indication: HYPERALDOSTERONISM
     Route: 065
     Dates: start: 20180611
  2. DEXAMETHASONE ACETATE [Concomitant]
     Active Substance: DEXAMETHASONE ACETATE
     Route: 048
     Dates: start: 20180820, end: 20180821
  3. DEXAMETHASONE ACETATE [Concomitant]
     Active Substance: DEXAMETHASONE ACETATE
     Route: 048
     Dates: start: 20181008, end: 20181009
  4. LANSOPRAZOLE. [Concomitant]
     Active Substance: LANSOPRAZOLE
     Route: 065
     Dates: start: 20180821, end: 20180821
  5. LANSOPRAZOLE. [Concomitant]
     Active Substance: LANSOPRAZOLE
     Route: 065
     Dates: start: 20180730, end: 20180730
  6. LANSOPRAZOLE. [Concomitant]
     Active Substance: LANSOPRAZOLE
     Route: 065
     Dates: start: 20190103, end: 20190103
  7. AMIFOSTINE. [Concomitant]
     Active Substance: AMIFOSTINE
     Route: 065
     Dates: start: 20181030, end: 20181030
  8. POTASSIUM CHLORIDE. [Concomitant]
     Active Substance: POTASSIUM CHLORIDE
     Route: 065
     Dates: start: 20190124, end: 20190125
  9. BLOOD GINSENG [Concomitant]
     Indication: BONE MARROW FAILURE
     Route: 065
     Dates: start: 20180801, end: 20180818
  10. ASTRAGALUS [Concomitant]
     Indication: BONE MARROW FAILURE
     Route: 065
     Dates: start: 20180801, end: 20180818
  11. ANGELICA [Concomitant]
     Indication: BONE MARROW FAILURE
     Route: 065
     Dates: start: 20180801, end: 20180818
  12. AZASETRON HYDROCHLORIDE [Concomitant]
     Active Substance: AZASETRON HYDROCHLORIDE
     Route: 065
     Dates: start: 20181120, end: 20181120
  13. ESTAZOLAM. [Concomitant]
     Active Substance: ESTAZOLAM
     Route: 065
     Dates: start: 20180731, end: 20180731
  14. ESTAZOLAM. [Concomitant]
     Active Substance: ESTAZOLAM
     Route: 065
     Dates: start: 20181029, end: 20181030
  15. ESTAZOLAM. [Concomitant]
     Active Substance: ESTAZOLAM
     Route: 065
     Dates: start: 20190220, end: 20190220
  16. ATEZOLIZUMAB. [Suspect]
     Active Substance: ATEZOLIZUMAB
     Indication: OVARIAN CANCER
     Dosage: DATE OF MOST RECENT DOSE OF BLINDED ATEZOLIZUMAB PRIOR TO SAE ONSET: 21/AUG/2018?ON 20/NOV/2018, REC
     Route: 042
     Dates: start: 20180706
  17. BEVACIZUMAB. [Suspect]
     Active Substance: BEVACIZUMAB
     Indication: OVARIAN CANCER
     Dosage: DATE OF MOST RECENT DOSE OF BEVACIZUMAB OF 967.5 MG PRIOR TO AE ONSET 21/AUG/2018?ON 20/NOV/2018, RE
     Route: 042
     Dates: start: 20180730
  18. LANSOPRAZOLE. [Concomitant]
     Active Substance: LANSOPRAZOLE
     Route: 065
     Dates: start: 20181120, end: 20181120
  19. AMIFOSTINE. [Concomitant]
     Active Substance: AMIFOSTINE
     Route: 065
     Dates: start: 20190313, end: 20190313
  20. AMINO ACID [Concomitant]
     Active Substance: AMINO ACIDS
     Route: 065
     Dates: start: 20180821, end: 20180821
  21. EPIMEDIUM [Concomitant]
     Route: 065
     Dates: start: 20180823, end: 20180908
  22. AZASETRON HYDROCHLORIDE [Concomitant]
     Active Substance: AZASETRON HYDROCHLORIDE
     Route: 065
     Dates: start: 20180918, end: 20180918
  23. LEUCOGEN (CHINA) [Concomitant]
     Indication: BONE MARROW FAILURE
     Route: 065
     Dates: start: 20180912, end: 20181128
  24. LIDOCAINE HYDROCHLORIDE. [Concomitant]
     Active Substance: LIDOCAINE HYDROCHLORIDE
     Indication: MOUTH ULCERATION
     Route: 065
     Dates: start: 20180915, end: 20180915
  25. POVIDONE-IODINE. [Concomitant]
     Active Substance: POVIDONE-IODINE
     Route: 065
     Dates: start: 20181008, end: 20181008
  26. RED GINSENG [Concomitant]
     Active Substance: ASIAN GINSENG
     Route: 065
     Dates: start: 20181217, end: 20181217
  27. IRON POLYSACCHARIDE [Concomitant]
     Route: 065
     Dates: start: 20180913
  28. LANSOPRAZOLE. [Concomitant]
     Active Substance: LANSOPRAZOLE
     Route: 065
     Dates: start: 20181030, end: 20181030
  29. AMINO ACID [Concomitant]
     Active Substance: AMINO ACIDS
     Route: 065
     Dates: start: 20180730, end: 20180730
  30. AZASETRON HYDROCHLORIDE [Concomitant]
     Active Substance: AZASETRON HYDROCHLORIDE
     Route: 065
     Dates: start: 20180730, end: 20180730
  31. AZASETRON HYDROCHLORIDE [Concomitant]
     Active Substance: AZASETRON HYDROCHLORIDE
     Route: 065
     Dates: start: 20181211, end: 20181211
  32. ESTAZOLAM. [Concomitant]
     Active Substance: ESTAZOLAM
     Route: 065
     Dates: start: 20190213, end: 20190213
  33. LEUCOGEN (CHINA) [Concomitant]
     Route: 065
     Dates: start: 20181217, end: 20190123
  34. DEXAMETHASONE SODIUM PHOSPHATE. [Concomitant]
     Active Substance: DEXAMETHASONE SODIUM PHOSPHATE
     Route: 065
     Dates: start: 20190102, end: 20190105
  35. IRBESARTAN. [Concomitant]
     Active Substance: IRBESARTAN
     Route: 065
     Dates: start: 20181225
  36. CLOSTRIDIUM BUTYRICUM [Concomitant]
     Active Substance: CLOSTRIDIUM BUTYRICUM SPORES STRAIN M-55
     Indication: INTESTINAL OBSTRUCTION
     Route: 065
     Dates: start: 20181217, end: 20181219
  37. OMEPRAZOLE SODIUM [Concomitant]
     Active Substance: OMEPRAZOLE SODIUM
     Route: 065
     Dates: start: 20181217, end: 20181217
  38. LANSOPRAZOLE. [Concomitant]
     Active Substance: LANSOPRAZOLE
     Route: 065
     Dates: start: 20181009, end: 20181009
  39. AMIFOSTINE. [Concomitant]
     Active Substance: AMIFOSTINE
     Route: 065
     Dates: start: 20180730, end: 20180730
  40. AMIFOSTINE. [Concomitant]
     Active Substance: AMIFOSTINE
     Route: 065
     Dates: start: 20180918, end: 20180918
  41. AMIFOSTINE. [Concomitant]
     Active Substance: AMIFOSTINE
     Route: 065
     Dates: start: 20181120, end: 20181120
  42. POTASSIUM CHLORIDE. [Concomitant]
     Active Substance: POTASSIUM CHLORIDE
     Route: 065
     Dates: start: 20180821, end: 20180821
  43. POTASSIUM CHLORIDE. [Concomitant]
     Active Substance: POTASSIUM CHLORIDE
     Route: 065
     Dates: start: 20180918, end: 20180918
  44. SODIUM CHLORIDE. [Concomitant]
     Active Substance: SODIUM CHLORIDE
     Route: 065
     Dates: start: 20180821, end: 20180821
  45. LEUCOGEN (CHINA) [Concomitant]
     Route: 065
     Dates: start: 20190125
  46. LIDOCAINE HYDROCHLORIDE. [Concomitant]
     Active Substance: LIDOCAINE HYDROCHLORIDE
     Route: 065
     Dates: start: 20181008, end: 20181008
  47. LIDOCAINE HYDROCHLORIDE. [Concomitant]
     Active Substance: LIDOCAINE HYDROCHLORIDE
     Route: 065
     Dates: start: 20190102, end: 20190114
  48. FERROUS SUCCINATE [Concomitant]
     Active Substance: FERROUS SUCCINATE
     Route: 065
     Dates: start: 20190104, end: 20190114
  49. PARACETAMOL [Concomitant]
     Active Substance: ACETAMINOPHEN
     Indication: UPPER RESPIRATORY TRACT INFECTION
     Route: 065
     Dates: start: 20190214, end: 20190217
  50. LANSOPRAZOLE. [Concomitant]
     Active Substance: LANSOPRAZOLE
     Route: 065
     Dates: start: 20190220, end: 20190220
  51. AMIFOSTINE. [Concomitant]
     Active Substance: AMIFOSTINE
     Route: 065
     Dates: start: 20180821, end: 20180821
  52. AMIFOSTINE. [Concomitant]
     Active Substance: AMIFOSTINE
     Route: 065
     Dates: start: 20181009, end: 20181009
  53. JUJUBE [Concomitant]
     Indication: BONE MARROW FAILURE
     Route: 065
     Dates: start: 20180801, end: 20180818
  54. EPIMEDIUM [Concomitant]
     Indication: BONE MARROW FAILURE
     Route: 065
     Dates: start: 20180801, end: 20180818
  55. ESTAZOLAM. [Concomitant]
     Active Substance: ESTAZOLAM
     Route: 065
     Dates: start: 20181221, end: 20181227
  56. ESTAZOLAM. [Concomitant]
     Active Substance: ESTAZOLAM
     Route: 065
     Dates: start: 20190123, end: 20190123
  57. AMIKACIN SULFATE. [Concomitant]
     Active Substance: AMIKACIN SULFATE
     Indication: MOUTH ULCERATION
     Route: 065
     Dates: start: 20180915, end: 20180915
  58. AMIKACIN SULFATE. [Concomitant]
     Active Substance: AMIKACIN SULFATE
     Route: 065
     Dates: start: 20190102, end: 20190102
  59. LANSOPRAZOLE. [Concomitant]
     Active Substance: LANSOPRAZOLE
     Route: 065
     Dates: start: 20180918, end: 20180918
  60. LANSOPRAZOLE. [Concomitant]
     Active Substance: LANSOPRAZOLE
     Route: 065
     Dates: start: 20190124, end: 20190124
  61. AMIFOSTINE. [Concomitant]
     Active Substance: AMIFOSTINE
     Route: 065
     Dates: start: 20190220, end: 20190220
  62. POTASSIUM CHLORIDE. [Concomitant]
     Active Substance: POTASSIUM CHLORIDE
     Route: 065
     Dates: start: 20180730, end: 20180730
  63. POTASSIUM CHLORIDE. [Concomitant]
     Active Substance: POTASSIUM CHLORIDE
     Route: 065
     Dates: start: 20181030, end: 20181030
  64. ESTAZOLAM. [Concomitant]
     Active Substance: ESTAZOLAM
     Route: 065
     Dates: start: 20180716, end: 20180730
  65. ESTAZOLAM. [Concomitant]
     Active Substance: ESTAZOLAM
     Route: 065
     Dates: start: 20180910, end: 20180911
  66. VITAMIN B6 [Concomitant]
     Active Substance: PYRIDOXINE HYDROCHLORIDE
     Route: 065
     Dates: start: 20181217, end: 20181217
  67. CARBOPLATIN. [Suspect]
     Active Substance: CARBOPLATIN
     Indication: OVARIAN CANCER
     Dosage: DATE OF MOST RECENT DOSE OF CARBOPLATIN OF 600 MG PRIOR TO AE ONSET 21/AUG/2018?AT A DOSE TO ACHIEVE
     Route: 042
     Dates: start: 20180706
  68. PACLITAXEL. [Suspect]
     Active Substance: PACLITAXEL
     Indication: OVARIAN CANCER
     Dosage: DATE OF MOST RECENT DOSE OF PACLITAXEL OF 270 MG PRIOR TO AE ONSET 21/AUG/2018?ON 20/NOV/2018, RECEI
     Route: 042
     Dates: start: 20180706
  69. IRON POLYSACCHARIDE [Concomitant]
     Indication: ANAEMIA
     Route: 065
     Dates: start: 20180621, end: 20180904
  70. IRON POLYSACCHARIDE [Concomitant]
     Route: 065
     Dates: start: 20180903, end: 20180908
  71. JUJUBE [Concomitant]
     Route: 065
     Dates: start: 20180823, end: 20180908
  72. RADIX SOPHORAE FLAVESCENTIS [Concomitant]
     Indication: BONE MARROW FAILURE
     Route: 065
     Dates: start: 20180801, end: 20180818
  73. ESTAZOLAM. [Concomitant]
     Active Substance: ESTAZOLAM
     Route: 065
     Dates: start: 20190103, end: 20190103
  74. ESTAZOLAM. [Concomitant]
     Active Substance: ESTAZOLAM
     Route: 065
     Dates: start: 20190103, end: 20190103
  75. AMINO ACID [Concomitant]
     Active Substance: AMINO ACIDS
     Route: 065
     Dates: start: 20181009, end: 20181009
  76. MEGLUMINE ADENOSINE CYCLOPHOSPHATE [Concomitant]
     Active Substance: ADENOSINE CYCLIC PHOSPHATE MEGLUMINE
     Indication: ARRHYTHMIA
     Route: 065
     Dates: start: 20181217, end: 20181217
  77. RADIX OPHIOPOGONIS [Concomitant]
     Route: 065
     Dates: start: 20181217, end: 20181217
  78. DEXAMETHASONE ACETATE [Concomitant]
     Active Substance: DEXAMETHASONE ACETATE
     Route: 048
     Dates: start: 20180729, end: 20180730
  79. DEXAMETHASONE ACETATE [Concomitant]
     Active Substance: DEXAMETHASONE ACETATE
     Route: 065
     Dates: start: 20181029, end: 20181030
  80. LANSOPRAZOLE. [Concomitant]
     Active Substance: LANSOPRAZOLE
     Route: 065
     Dates: start: 20190313, end: 20190313
  81. LANSOPRAZOLE. [Concomitant]
     Active Substance: LANSOPRAZOLE
     Route: 065
     Dates: start: 20181211, end: 20181211
  82. POTASSIUM CHLORIDE. [Concomitant]
     Active Substance: POTASSIUM CHLORIDE
     Route: 065
     Dates: start: 20181009, end: 20181009
  83. POTASSIUM CHLORIDE. [Concomitant]
     Active Substance: POTASSIUM CHLORIDE
     Route: 065
     Dates: start: 20181211, end: 20181211
  84. AZASETRON HYDROCHLORIDE [Concomitant]
     Active Substance: AZASETRON HYDROCHLORIDE
     Route: 065
     Dates: start: 20180821, end: 20180821
  85. AZASETRON HYDROCHLORIDE [Concomitant]
     Active Substance: AZASETRON HYDROCHLORIDE
     Route: 065
     Dates: start: 20181030, end: 20181030
  86. DEXAMETHASONE SODIUM PHOSPHATE. [Concomitant]
     Active Substance: DEXAMETHASONE SODIUM PHOSPHATE
     Indication: MOUTH ULCERATION
     Route: 065
     Dates: start: 20180915, end: 20180915
  87. NIFEDIPINE. [Concomitant]
     Active Substance: NIFEDIPINE
     Route: 065
     Dates: start: 20181211
  88. HYDROCHLOROTHIAZIDE. [Concomitant]
     Active Substance: HYDROCHLOROTHIAZIDE
     Route: 065
     Dates: start: 20181225

REACTIONS (5)
  - Ileus [Recovered/Resolved]
  - Hypothyroidism [Not Recovered/Not Resolved]
  - Hypertension [Not Recovered/Not Resolved]
  - Liver injury [Recovered/Resolved]
  - Hyperthyroidism [Recovered/Resolved]

NARRATIVE: CASE EVENT DATE: 20180828
